APPROVED DRUG PRODUCT: PREVALITE
Active Ingredient: CHOLESTYRAMINE
Strength: EQ 4GM RESIN/PACKET
Dosage Form/Route: POWDER;ORAL
Application: A073263 | Product #001 | TE Code: AB
Applicant: AIPING PHARMACEUTICAL INC
Approved: Feb 22, 1996 | RLD: No | RS: No | Type: RX